FAERS Safety Report 22071479 (Version 1)
Quarter: 2023Q1

REPORT INFORMATION
  Report Type: Spontaneous
  Country: US (occurrence: None)
  Receive Date: 20230307
  Receipt Date: 20230307
  Transmission Date: 20230418
  Serious: Yes (Hospitalization)
  Sender: FDA-Public Use
  Company Number: None

PATIENT
  Age: 65 Year
  Sex: Female
  Weight: 56.88 kg

DRUGS (11)
  1. ALECENSA [Suspect]
     Active Substance: ALECTINIB HYDROCHLORIDE
     Indication: Lung carcinoma cell type unspecified stage 0
     Dosage: FREQUENCY : TWICE A WEEK;?
     Route: 048
     Dates: start: 20230105, end: 20230307
  2. CALCIUM [Concomitant]
     Active Substance: CALCIUM
  3. FIBER [Concomitant]
  4. FOLIC ACID [Concomitant]
     Active Substance: FOLIC ACID
  5. Vitamin C [Concomitant]
  6. VITAMIN D3 [Concomitant]
     Active Substance: CHOLECALCIFEROL
  7. LEVOTHYROXINE SODIUM [Concomitant]
  8. ONDANSETRON [Concomitant]
  9. PROLIA [Concomitant]
     Active Substance: DENOSUMAB
  10. TYLENOL [Concomitant]
     Active Substance: ACETAMINOPHEN
  11. ZINC [Concomitant]
     Active Substance: ZINC

REACTIONS (1)
  - Adverse drug reaction [None]
